FAERS Safety Report 25142672 (Version 1)
Quarter: 2025Q1

REPORT INFORMATION
  Report Type: Spontaneous
  Country: GB (occurrence: GB)
  Receive Date: 20250331
  Receipt Date: 20250331
  Transmission Date: 20250409
  Serious: Yes (Hospitalization)
  Sender: TAKEDA
  Company Number: GB-TAKEDA-2025TUS029793

PATIENT
  Sex: Male

DRUGS (2)
  1. ENTYVIO [Suspect]
     Active Substance: VEDOLIZUMAB
     Indication: Colitis ulcerative
  2. APIXABAN [Suspect]
     Active Substance: APIXABAN
     Indication: Atrial flutter
     Dosage: UNK UNK, QD

REACTIONS (2)
  - Atrial flutter [Unknown]
  - Feeling cold [Unknown]
